FAERS Safety Report 7118614-7 (Version None)
Quarter: 2010Q4

REPORT INFORMATION
  Report Type: 
  Country: None (occurrence: None)
  Receive Date: 20101123
  Receipt Date: 20101110
  Transmission Date: 20110411
  Serious: No
  Sender: FDA-Public Use
  Company Number: JP-ELI_LILLY_AND_COMPANY-JP201010006538

PATIENT
  Sex: Female

DRUGS (9)
  1. CYMBALTA [Suspect]
     Indication: DEPRESSION
     Dosage: 20 MG, DAILY (1/D)
     Route: 048
     Dates: start: 20100720, end: 20100803
  2. ROHYPNOL [Concomitant]
     Indication: DEPRESSION
     Dosage: 2 MG, DAILY (1/D)
     Route: 048
     Dates: start: 20080930
  3. MYSLEE [Concomitant]
     Indication: DEPRESSION
     Dosage: 10 MG, DAILY (1/D)
     Route: 048
  4. PURSENNID /00571902/ [Concomitant]
     Dosage: 24 MG, DAILY (1/D)
     Route: 048
  5. ALOSENN                            /00476901/ [Concomitant]
     Dosage: 1 G, DAILY (1/D)
     Route: 048
  6. LUVOX [Concomitant]
     Indication: DEPRESSION
     Dosage: 50 MG, 3/D
     Route: 048
  7. TOFRANIL [Concomitant]
     Indication: DEPRESSION
     Dosage: 25 MG, 3/D
     Route: 048
     Dates: start: 20061111
  8. DEPAS [Concomitant]
     Indication: DEPRESSION
     Dosage: 0.5 MG, 3/D
     Route: 048
     Dates: start: 20070316
  9. MAGLAX [Concomitant]
     Dosage: 2 G, DAILY (1/D)
     Route: 048

REACTIONS (1)
  - ASTHMA [None]
